FAERS Safety Report 20190629 (Version 1)
Quarter: 2021Q4

REPORT INFORMATION
  Report Type: Spontaneous
  Country: US (occurrence: None)
  Receive Date: 20211216
  Receipt Date: 20211216
  Transmission Date: 20220303
  Serious: No
  Sender: FDA-Public Use
  Company Number: US-MDD US Operations-SUP202110-002115

PATIENT
  Age: 8 Year
  Sex: Male

DRUGS (4)
  1. TROKENDI XR [Suspect]
     Active Substance: TOPIRAMATE
     Indication: Tic
     Dosage: 50 MG
  2. Anafranol [Concomitant]
     Dosage: NOT PROVIDED
  3. ABILIFY [Concomitant]
     Active Substance: ARIPIPRAZOLE
     Dosage: NOT PROVIDED
  4. Comtempla XR [Concomitant]
     Indication: Attention deficit hyperactivity disorder
     Dosage: NOT PROVIDED

REACTIONS (2)
  - Enuresis [Unknown]
  - Product use in unapproved indication [Unknown]
